FAERS Safety Report 8250417-2 (Version None)
Quarter: 2012Q2

REPORT INFORMATION
  Report Type: 
  Country: None (occurrence: None)
  Receive Date: 20120402
  Receipt Date: 20120323
  Transmission Date: 20120825
  Serious: Yes (Death, Life-Threatening, Hospitalization)
  Sender: FDA-Public Use
  Company Number: JP-GENZYME-THYM-1002196

PATIENT
  Age: 67 Year
  Sex: Female
  Weight: 44 kg

DRUGS (24)
  1. PREDNISOLONE [Concomitant]
     Indication: PREMEDICATION
     Dosage: UNK
     Route: 065
     Dates: start: 20100926, end: 20101017
  2. NICORANDIL [Concomitant]
     Dosage: UNK
     Route: 065
     Dates: start: 20101001, end: 20101107
  3. POLYMYXIN B SULFATE [Concomitant]
     Indication: INFECTION PROPHYLAXIS
     Dosage: UNK
     Route: 065
     Dates: start: 20100917, end: 20101107
  4. FEXOFENADINE HYDROCHLORIDE [Concomitant]
     Indication: PREMEDICATION
     Dosage: UNK
     Route: 065
     Dates: start: 20100921, end: 20100925
  5. OMEPRAZOLE [Concomitant]
     Indication: PROPHYLAXIS AGAINST GASTROINTESTINAL ULCER
     Dosage: UNK
     Route: 065
     Dates: start: 20101104, end: 20101209
  6. RED BLOOD CELLS, CONCENTRATED [Concomitant]
     Indication: APLASTIC ANAEMIA
     Dosage: UNK
     Route: 065
     Dates: start: 20100907, end: 20101207
  7. MEROPENEM [Concomitant]
     Indication: FEBRILE NEUTROPENIA
     Dosage: UNK
     Route: 065
     Dates: start: 20100907, end: 20100930
  8. NICORANDIL [Concomitant]
     Dosage: UNK
     Route: 065
     Dates: start: 20100911, end: 20100930
  9. ANTITHROMBIN III HUMAN [Concomitant]
     Indication: DISSEMINATED INTRAVASCULAR COAGULATION
     Dosage: UNK
     Route: 065
     Dates: start: 20100908, end: 20100910
  10. FILGRASTIM [Concomitant]
     Indication: FEBRILE NEUTROPENIA
  11. INSULIN HUMAN [Concomitant]
     Indication: TYPE 2 DIABETES MELLITUS
     Dosage: UNK
     Route: 065
     Dates: start: 20100922, end: 20101209
  12. ACETAMINOPHEN [Concomitant]
     Indication: PREMEDICATION
     Dosage: UNK
     Route: 065
     Dates: start: 20100921, end: 20100925
  13. METHYLPREDNISOLONE SODIUM SUCCINATE [Concomitant]
     Indication: PREMEDICATION
     Dosage: UNK
     Route: 065
     Dates: start: 20100921, end: 20100925
  14. LANSOPRAZOLE [Concomitant]
     Indication: PROPHYLAXIS AGAINST GASTROINTESTINAL ULCER
     Dosage: UNK
     Route: 065
     Dates: start: 20100907, end: 20100930
  15. ITRACONAZOLE [Concomitant]
     Indication: ANTIFUNGAL PROPHYLAXIS
     Dosage: UNK
     Route: 065
     Dates: start: 20100917, end: 20101104
  16. PENTAMIDINE ISETHIONATE [Concomitant]
     Indication: ANTIFUNGAL PROPHYLAXIS
     Dosage: UNK
     Route: 065
     Dates: start: 20100918, end: 20101209
  17. PLATELETS [Concomitant]
     Indication: APLASTIC ANAEMIA
     Dosage: UNK
     Route: 065
     Dates: start: 20100907, end: 20101209
  18. LANSOPRAZOLE [Concomitant]
     Dosage: UNK
     Route: 065
     Dates: start: 20101029, end: 20101103
  19. CLOSTRIDIUM BUTYRICUM [Concomitant]
     Indication: PROPHYLAXIS AGAINST DIARRHOEA
     Dosage: UNK
     Route: 065
     Dates: start: 20100917, end: 20101107
  20. THYMOGLOBULIN [Suspect]
     Indication: APLASTIC ANAEMIA
     Dosage: 150 MG, QD
     Route: 042
     Dates: start: 20100921, end: 20100925
  21. CYCLOSPORINE [Concomitant]
     Indication: APLASTIC ANAEMIA
     Dosage: UNK
     Route: 065
     Dates: start: 20100917, end: 20101021
  22. NICORANDIL [Concomitant]
     Indication: POSTINFARCTION ANGINA
     Dosage: UNK
     Route: 065
     Dates: start: 20100907, end: 20100910
  23. FILGRASTIM [Concomitant]
     Indication: APLASTIC ANAEMIA
     Dosage: UNK
     Route: 065
     Dates: start: 20100909, end: 20101017
  24. BROMHEXINE HYDROCHLORIDE [Concomitant]
     Indication: PROPHYLAXIS
     Dosage: UNK
     Route: 065
     Dates: start: 20101113, end: 20101209

REACTIONS (22)
  - FEBRILE NEUTROPENIA [None]
  - HYPOXIC-ISCHAEMIC ENCEPHALOPATHY [None]
  - BLOOD LACTATE DEHYDROGENASE INCREASED [None]
  - DECUBITUS ULCER [None]
  - HYPOPROTEINAEMIA [None]
  - ALANINE AMINOTRANSFERASE INCREASED [None]
  - NEUTROPHIL COUNT DECREASED [None]
  - BLOOD BILIRUBIN INCREASED [None]
  - DISSEMINATED INTRAVASCULAR COAGULATION [None]
  - XERODERMA [None]
  - CARDIAC FAILURE [None]
  - STAPHYLOCOCCAL INFECTION [None]
  - PNEUMONIA FUNGAL [None]
  - RESPIRATORY FAILURE [None]
  - CARDIAC FAILURE CONGESTIVE [None]
  - PULMONARY OEDEMA [None]
  - POST TRANSPLANT LYMPHOPROLIFERATIVE DISORDER [None]
  - ASPARTATE AMINOTRANSFERASE INCREASED [None]
  - BLOOD CREATININE INCREASED [None]
  - LYMPHOCYTE COUNT INCREASED [None]
  - CYTOMEGALOVIRUS INFECTION [None]
  - DRY MOUTH [None]
